FAERS Safety Report 24039029 (Version 4)
Quarter: 2024Q4

REPORT INFORMATION
  Report Type: Spontaneous
  Country: CA (occurrence: CA)
  Receive Date: 20240702
  Receipt Date: 20241115
  Transmission Date: 20250114
  Serious: Yes (Other)
  Sender: CELLTRION
  Company Number: CA-PFIZER INC-PV202300047009

PATIENT

DRUGS (6)
  1. INFLECTRA [Suspect]
     Active Substance: INFLIXIMAB-DYYB
     Indication: Rheumatoid arthritis
     Dosage: 300 MG EVERY 8 WEEKS
     Route: 042
     Dates: start: 20210824
  2. INFLECTRA [Suspect]
     Active Substance: INFLIXIMAB-DYYB
     Dosage: UNK
  3. INFLECTRA [Suspect]
     Active Substance: INFLIXIMAB-DYYB
     Dosage: 300 MG EVERY 8 WEEKS
     Route: 042
     Dates: start: 20240409
  4. INFLECTRA [Suspect]
     Active Substance: INFLIXIMAB-DYYB
     Dosage: UNK
  5. INFLECTRA [Suspect]
     Active Substance: INFLIXIMAB-DYYB
     Dosage: UNK
  6. INFLECTRA [Suspect]
     Active Substance: INFLIXIMAB-DYYB
     Dosage: UNK

REACTIONS (9)
  - Bronchitis bacterial [Recovered/Resolved]
  - Asthenia [Not Recovered/Not Resolved]
  - Fall [Not Recovered/Not Resolved]
  - Back pain [Unknown]
  - Arthralgia [Unknown]
  - Hypoaesthesia [Recovered/Resolved]
  - Arthralgia [Recovered/Resolved]
  - Inappropriate schedule of product administration [Unknown]
  - Off label use [Unknown]

NARRATIVE: CASE EVENT DATE: 20210824
